FAERS Safety Report 6750433-3 (Version None)
Quarter: 2010Q2

REPORT INFORMATION
  Report Type: 
  Country: None (occurrence: None)
  Receive Date: 20100601
  Receipt Date: 20100519
  Transmission Date: 20101027
  Serious: Yes (Death)
  Sender: FDA-Public Use
  Company Number: CA-ELI_LILLY_AND_COMPANY-CA201005005458

PATIENT
  Sex: Male

DRUGS (5)
  1. ZYPREXA [Suspect]
     Indication: AUTISM
     Dosage: 2.5 MG, EACH MORNING
     Route: 048
     Dates: end: 20080313
  2. ZYPREXA [Suspect]
     Dosage: 5 MG, EACH EVENING
     Route: 048
     Dates: end: 20080313
  3. ZOLOFT [Concomitant]
     Dosage: 25 MG, 2/D
     Route: 048
  4. BIPHENTIN [Concomitant]
     Dosage: 40 MG, EACH MORNING
  5. CLONIDINE [Concomitant]
     Dosage: 0.1 MG, DAILY (1/D)

REACTIONS (6)
  - DYSPNOEA [None]
  - EYELID PTOSIS [None]
  - OFF LABEL USE [None]
  - SOMNOLENCE [None]
  - SUDDEN DEATH [None]
  - WEIGHT INCREASED [None]
